FAERS Safety Report 5891594-8 (Version None)
Quarter: 2008Q3

REPORT INFORMATION
  Report Type: 
  Country: None (occurrence: None)
  Receive Date: 20080908
  Receipt Date: 20080626
  Transmission Date: 20090109
  Serious: No
  Sender: FDA-Public Use
  Company Number: 002#2#2008-00532

PATIENT
  Age: 61 Year
  Sex: Male
  Weight: 205 kg

DRUGS (8)
  1. NEUPRO [Suspect]
     Indication: RESTLESS LEGS SYNDROME
     Dosage: 2MG/24H, 1 IN 1, TRANSDERMAL : 6MG/24H, 1 IN 1 D, TRANSDERMAL
     Route: 062
     Dates: start: 20080501, end: 20080601
  2. NEUPRO [Suspect]
     Indication: RESTLESS LEGS SYNDROME
     Dosage: 2MG/24H, 1 IN 1, TRANSDERMAL : 6MG/24H, 1 IN 1 D, TRANSDERMAL
     Route: 062
     Dates: start: 20080601
  3. M.V.I. [Concomitant]
  4. GINGKO BILOBA [Concomitant]
  5. ST. JOHNS WART [Concomitant]
  6. ASPIRIN [Concomitant]
  7. FLAXSEED OIL [Concomitant]
  8. SIMVASTATIN [Concomitant]

REACTIONS (2)
  - OFF LABEL USE [None]
  - WRONG TECHNIQUE IN DRUG USAGE PROCESS [None]
